FAERS Safety Report 9854693 (Version 2)
Quarter: 2014Q2

REPORT INFORMATION
  Report Type: Spontaneous
  Country: US (occurrence: US)
  Receive Date: 20140130
  Receipt Date: 20140404
  Transmission Date: 20141212
  Serious: Yes (Other)
  Sender: FDA-Public Use
  Company Number: US-BEH-2014040444

PATIENT
  Age: 42 Year
  Sex: Male

DRUGS (2)
  1. IVIG [Suspect]
     Indication: MILLER FISHER SYNDROME
     Route: 042
  2. CIPROFLOXACIN [Suspect]
     Indication: CAMPYLOBACTER INFECTION

REACTIONS (5)
  - Meningitis aseptic [Recovered/Resolved]
  - Migraine [Recovered/Resolved]
  - Photophobia [Recovered/Resolved]
  - Musculoskeletal stiffness [Recovered/Resolved]
  - Pyrexia [Recovered/Resolved]
